FAERS Safety Report 9375343 (Version 2)
Quarter: 2013Q3

REPORT INFORMATION
  Report Type: Spontaneous
  Country: HU (occurrence: HU)
  Receive Date: 20130628
  Receipt Date: 20130722
  Transmission Date: 20140515
  Serious: Yes (Other)
  Sender: FDA-Public Use
  Company Number: HU-ELI_LILLY_AND_COMPANY-HU201306006850

PATIENT
  Age: 69 Year
  Sex: Female

DRUGS (4)
  1. FORSTEO [Suspect]
     Indication: OSTEOPOROSIS
     Dosage: 20 UG, QD
     Route: 058
     Dates: start: 20130525
  2. FORSTEO [Suspect]
     Dosage: 20 UG, QD
     Route: 058
     Dates: end: 20130620
  3. CALCIUM [Concomitant]
     Dosage: UNK, UNKNOWN
     Route: 065
  4. VITAMIN D3 [Concomitant]
     Dosage: UNK, UNKNOWN
     Route: 065

REACTIONS (5)
  - Suffocation feeling [Recovered/Resolved]
  - Pruritus generalised [Unknown]
  - Hypoaesthesia oral [Recovered/Resolved]
  - Hypersensitivity [Unknown]
  - Intentional drug misuse [Recovered/Resolved]
